FAERS Safety Report 6414097-0 (Version None)
Quarter: 2009Q4

REPORT INFORMATION
  Report Type: 
  Country: None (occurrence: None)
  Receive Date: 20091022
  Receipt Date: 20091022
  Transmission Date: 20100525
  Serious: Yes (Other)
  Sender: FDA-Public Use
  Company Number: None

PATIENT
  Sex: Female
  Weight: 80.2867 kg

DRUGS (2)
  1. PROZAC [Suspect]
     Indication: BIPOLAR DISORDER
  2. PROZAC [Suspect]
     Indication: PANIC DISORDER

REACTIONS (2)
  - ILL-DEFINED DISORDER [None]
  - PRODUCT SUBSTITUTION ISSUE [None]
